FAERS Safety Report 12694306 (Version 3)
Quarter: 2016Q4

REPORT INFORMATION
  Report Type: Spontaneous
  Country: US (occurrence: US)
  Receive Date: 20160829
  Receipt Date: 20161111
  Transmission Date: 20170207
  Serious: No
  Sender: FDA-Public Use
  Company Number: US-PFIZER INC-2016405193

PATIENT
  Age: 54 Year
  Sex: Female
  Weight: 127 kg

DRUGS (1)
  1. LYRICA [Suspect]
     Active Substance: PREGABALIN
     Indication: DIABETIC NEUROPATHY
     Dosage: UNK

REACTIONS (5)
  - Arthralgia [Unknown]
  - Disturbance in attention [Unknown]
  - Thinking abnormal [Unknown]
  - General physical health deterioration [Unknown]
  - Drug intolerance [Unknown]
